FAERS Safety Report 7647923-8 (Version None)
Quarter: 2011Q3

REPORT INFORMATION
  Report Type: 
  Country: None (occurrence: None)
  Receive Date: 20110801
  Receipt Date: 20110722
  Transmission Date: 20111222
  Serious: Yes (Hospitalization)
  Sender: FDA-Public Use
  Company Number: BR-ASTRAZENECA-2011SE44412

PATIENT
  Age: 55 Year
  Sex: Male
  Weight: 86 kg

DRUGS (1)
  1. OMEPRAZOLE [Suspect]
     Indication: GASTROOESOPHAGEAL REFLUX PROPHYLAXIS
     Dosage: AS REQUIRED
     Route: 048
     Dates: end: 20110601

REACTIONS (3)
  - GASTROINTESTINAL HAEMORRHAGE [None]
  - DIVERTICULITIS [None]
  - EROSIVE OESOPHAGITIS [None]
